FAERS Safety Report 22028418 (Version 1)
Quarter: 2023Q1

REPORT INFORMATION
  Report Type: Spontaneous
  Country: US (occurrence: None)
  Receive Date: 20230223
  Receipt Date: 20230223
  Transmission Date: 20230417
  Serious: No
  Sender: FDA-Public Use
  Company Number: US-ROCHE-3230062

PATIENT
  Age: 18 Month
  Sex: Male
  Weight: 11.1 kg

DRUGS (4)
  1. NUTROPIN [Suspect]
     Active Substance: SOMATROPIN
     Indication: Short stature
     Dosage: YES
     Route: 058
     Dates: start: 20221123
  2. NUTROPIN [Suspect]
     Active Substance: SOMATROPIN
  3. NUTROPIN [Suspect]
     Active Substance: SOMATROPIN
     Indication: Nephropathy
  4. NUTROPIN [Suspect]
     Active Substance: SOMATROPIN

REACTIONS (2)
  - Product storage error [Unknown]
  - No adverse event [Unknown]
